FAERS Safety Report 14653649 (Version 3)
Quarter: 2018Q3

REPORT INFORMATION
  Report Type: Spontaneous
  Country: US (occurrence: US)
  Receive Date: 20180319
  Receipt Date: 20180918
  Transmission Date: 20181010
  Serious: No
  Sender: FDA-Public Use
  Company Number: US-BIOGEN-2017BI00483238

PATIENT
  Age: 60 Year
  Sex: Female

DRUGS (4)
  1. AVONEX [Suspect]
     Active Substance: INTERFERON BETA-1A
     Route: 065
     Dates: start: 201802
  2. AVONEX [Suspect]
     Active Substance: INTERFERON BETA-1A
     Indication: MULTIPLE SCLEROSIS
     Route: 030
     Dates: start: 20170906
  3. AVONEX [Suspect]
     Active Substance: INTERFERON BETA-1A
     Route: 065
     Dates: start: 20170524
  4. AVONEX [Suspect]
     Active Substance: INTERFERON BETA-1A
     Route: 065
     Dates: end: 20170424

REACTIONS (11)
  - Nasopharyngitis [Recovered/Resolved]
  - Multiple sclerosis relapse [Unknown]
  - Oropharyngeal pain [Unknown]
  - Loss of control of legs [Unknown]
  - Rib fracture [Recovered/Resolved]
  - Multiple fractures [Not Recovered/Not Resolved]
  - Gait disturbance [Recovered/Resolved]
  - Fall [Recovered/Resolved]
  - Gastrointestinal disorder [Unknown]
  - Productive cough [Unknown]
  - Hypertension [Unknown]

NARRATIVE: CASE EVENT DATE: 20171104
